FAERS Safety Report 6985488-4 (Version None)
Quarter: 2010Q3

REPORT INFORMATION
  Report Type: 
  Country: None (occurrence: None)
  Receive Date: 20100915
  Receipt Date: 20100907
  Transmission Date: 20110219
  Serious: Yes (Life-Threatening, Hospitalization)
  Sender: FDA-Public Use
  Company Number: B0673345A

PATIENT
  Sex: Female

DRUGS (2)
  1. ARIXTRA [Suspect]
     Indication: THROMBOSIS PROPHYLAXIS
     Route: 058
     Dates: start: 20100712, end: 20100723
  2. EFFERALGAN [Concomitant]

REACTIONS (8)
  - ABDOMINAL PAIN [None]
  - ANAEMIA [None]
  - DRUG DISPENSING ERROR [None]
  - HYPOVOLAEMIC SHOCK [None]
  - MUSCLE HAEMORRHAGE [None]
  - OVERDOSE [None]
  - RENAL FAILURE ACUTE [None]
  - THROMBOCYTOPENIA [None]
